FAERS Safety Report 11708408 (Version 1)
Quarter: 2015Q4

REPORT INFORMATION
  Report Type: Spontaneous
  Country: AU (occurrence: AU)
  Receive Date: 20151107
  Receipt Date: 20151107
  Transmission Date: 20160304
  Serious: Yes (Other)
  Sender: FDA-Public Use
  Company Number: AU-CIPLA LTD.-2015AU08391

PATIENT

DRUGS (2)
  1. GEMCITABINE [Suspect]
     Active Substance: GEMCITABINE\GEMCITABINE HYDROCHLORIDE
     Indication: PANCREATIC CARCINOMA METASTATIC
     Dosage: 1000 MG/M2, GIVEN WEEKLY FOR 7 WEEKS FOLLOWED BY A 1-WEEK REST, AND THEREAFTER WEEKLY FOR 3WEEKS,
     Route: 065
  2. FLUOROURACIL. [Suspect]
     Active Substance: FLUOROURACIL
     Indication: PANCREATIC CARCINOMA METASTATIC
     Dosage: 600 MG/M2, 2 DAYS AFTER THE FIRST BOLUS INJECTION
     Route: 065

REACTIONS (2)
  - Ascites [Unknown]
  - Jaundice cholestatic [Unknown]
